FAERS Safety Report 5419628-5 (Version None)
Quarter: 2007Q3

REPORT INFORMATION
  Report Type: 
  Country: None (occurrence: None)
  Receive Date: 20070816
  Receipt Date: 20070816
  Transmission Date: 20080115
  Serious: Yes (Other)
  Sender: FDA-Public Use
  Company Number: None

PATIENT
  Sex: Female

DRUGS (5)
  1. REVLIMID [Suspect]
     Indication: UTERINE CANCER
     Dosage: 15MG  DAILY X21D/28D  PO
     Route: 048
     Dates: start: 20070515, end: 20070802
  2. ASPIRIN [Concomitant]
  3. ENDOCET [Concomitant]
  4. ACETAMINOPHEN AND HYDROCODONE BITARTRATE [Concomitant]
  5. PROCRIT [Concomitant]

REACTIONS (4)
  - CONTUSION [None]
  - MUSCLE SPASMS [None]
  - PLATELET COUNT DECREASED [None]
  - WHITE BLOOD CELL COUNT DECREASED [None]
